FAERS Safety Report 12875679 (Version 1)
Quarter: 2016Q4

REPORT INFORMATION
  Report Type: Report from Study
  Country: IT (occurrence: IT)
  Receive Date: 20161024
  Receipt Date: 20161024
  Transmission Date: 20170207
  Serious: Yes (Death, Hospitalization, Other)
  Sender: FDA-Public Use
  Company Number: IT-AMGEN-ITANI2016121049

PATIENT
  Age: 73 Year
  Sex: Female

DRUGS (9)
  1. ALPRAZOLAM. [Concomitant]
     Active Substance: ALPRAZOLAM
     Dosage: 0.25 MG, QD
     Route: 048
     Dates: start: 20160809
  2. CARFILZOMIB [Suspect]
     Active Substance: CARFILZOMIB
     Indication: PLASMA CELL MYELOMA
     Dosage: 30 MG, DAY 1, 2, 8, 9, 15, AND 16.
     Route: 042
     Dates: start: 20160308, end: 2016
  3. LANSOPRAZOLE. [Concomitant]
     Active Substance: LANSOPRAZOLE
     Dosage: 20 MG, QD
     Route: 048
     Dates: start: 20160615
  4. KCL [Concomitant]
     Active Substance: POTASSIUM CHLORIDE
     Dosage: 600 MG, BID
     Route: 048
     Dates: start: 20160615
  5. MESALAZINA [Concomitant]
     Active Substance: MESALAMINE
     Dosage: 800 MG, TID
     Route: 048
     Dates: start: 20160809
  6. OMEPRAZOLE. [Concomitant]
     Active Substance: OMEPRAZOLE
     Dosage: 20 MG, QD
     Route: 048
     Dates: start: 20160809
  7. NALOXONE W/OXYCODONE [Concomitant]
     Active Substance: NALOXONE HYDROCHLORIDE\OXYCODONE HYDROCHLORIDE
     Dosage: 20/10, BID
     Route: 048
     Dates: start: 20160615
  8. ACYCLOVIR. [Concomitant]
     Active Substance: ACYCLOVIR
     Dosage: 400 MG, QD
     Route: 048
     Dates: start: 20160809
  9. CARFILZOMIB [Suspect]
     Active Substance: CARFILZOMIB
     Dosage: 20 MG, DAY 1, 2, 8, 9, 15, AND 16.
     Route: 042
     Dates: start: 2016, end: 20160706

REACTIONS (4)
  - Neoplasm malignant [Fatal]
  - Colitis ulcerative [Not Recovered/Not Resolved]
  - Infectious colitis [Unknown]
  - Neutropenia [Recovered/Resolved]

NARRATIVE: CASE EVENT DATE: 2016
